FAERS Safety Report 16736053 (Version 1)
Quarter: 2019Q4

REPORT INFORMATION
  Report Type: Spontaneous
  Country: US (occurrence: US)
  Receive Date: 20190823
  Receipt Date: 20190823
  Transmission Date: 20200122
  Serious: Yes (Other)
  Sender: FDA-Public Use
  Company Number: None

PATIENT
  Age: 33 Year
  Sex: Female

DRUGS (3)
  1. BUPRENORPHINE NALOXONE 8-2 MG TABLETS [Concomitant]
     Dates: start: 20190603, end: 20190703
  2. BUP/NAL FILMS [Concomitant]
     Dates: start: 20190703, end: 20190823
  3. BUPRENORPHINE/NALAXONE FILMS [Suspect]
     Active Substance: BUPRENORPHINE\NALOXONE
     Indication: DRUG DEPENDENCE
     Route: 048
     Dates: start: 20190603, end: 20190823

REACTIONS (3)
  - Nausea [None]
  - Vomiting [None]
  - Product substitution issue [None]

NARRATIVE: CASE EVENT DATE: 20190823
